FAERS Safety Report 25731211 (Version 2)
Quarter: 2025Q3

REPORT INFORMATION
  Report Type: Spontaneous
  Country: US (occurrence: US)
  Receive Date: 20250827
  Receipt Date: 20250912
  Transmission Date: 20251020
  Serious: Yes (Hospitalization)
  Sender: SAREPTA THERAPEUTICS
  Company Number: US-SAREPTA THERAPEUTICS INC.-SRP2025-006267

PATIENT
  Age: 16 Year
  Sex: Male

DRUGS (3)
  1. ELEVIDYS [Suspect]
     Active Substance: DELANDISTROGENE MOXEPARVOVEC-ROKL
     Indication: Product used for unknown indication
     Route: 042
     Dates: start: 20250703, end: 20250703
  2. EMFLAZA [Concomitant]
     Active Substance: DEFLAZACORT
     Indication: Product used for unknown indication
  3. PREDNISONE [Concomitant]
     Active Substance: PREDNISONE
     Indication: Gene therapy

REACTIONS (14)
  - Migraine [Unknown]
  - Balance disorder [Unknown]
  - Myalgia [Recovered/Resolved]
  - Mood swings [Unknown]
  - Depression [Unknown]
  - Anxiety [Unknown]
  - Substance-induced psychotic disorder [Unknown]
  - Confusional state [Unknown]
  - Hallucination [Unknown]
  - Tremor [Unknown]
  - Dissociation [Unknown]
  - Thinking abnormal [Unknown]
  - Fatigue [Unknown]
  - Abdominal pain upper [Recovered/Resolved]

NARRATIVE: CASE EVENT DATE: 20250701
